FAERS Safety Report 6468917-4 (Version None)
Quarter: 2009Q4

REPORT INFORMATION
  Report Type: 
  Country: None (occurrence: None)
  Receive Date: 20091119
  Receipt Date: 20090825
  Transmission Date: 20100525
  Serious: No
  Sender: FDA-Public Use
  Company Number: WAES 0908USA04228

PATIENT
  Age: 73 Year
  Sex: Female

DRUGS (2)
  1. JANUVIA [Suspect]
     Indication: TYPE 2 DIABETES MELLITUS
     Dosage: PO
     Route: 048
     Dates: start: 20070813, end: 20090301
  2. INSULIN [Concomitant]

REACTIONS (4)
  - DROOLING [None]
  - DYSPHONIA [None]
  - RHINORRHOEA [None]
  - SALIVARY HYPERSECRETION [None]
